FAERS Safety Report 4656476-8 (Version None)
Quarter: 2005Q2

REPORT INFORMATION
  Report Type: 
  Country: None (occurrence: None)
  Receive Date: 20050504
  Receipt Date: 20050422
  Transmission Date: 20051028
  Serious: Yes (Life-Threatening, Hospitalization)
  Sender: FDA-Public Use
  Company Number: 05P-129-0292093-00

PATIENT
  Age: 59 Year
  Sex: Male

DRUGS (5)
  1. TRICOR [Suspect]
     Indication: HYPERTRIGLYCERIDAEMIA
     Dosage: 100 MG, 2 IN 1 D, ORAL
     Route: 048
     Dates: start: 20040531, end: 20040611
  2. DIGOXIN [Concomitant]
  3. RNALAPRIL MALEATE [Concomitant]
  4. ACENOCOUMAROL [Concomitant]
  5. BISOPROLOL FUMARATE [Concomitant]

REACTIONS (5)
  - DIARRHOEA [None]
  - LIVER DISORDER [None]
  - PANCREATITIS NECROTISING [None]
  - POLYNEUROPATHY [None]
  - SPLENOMEGALY [None]
